FAERS Safety Report 19687424 (Version 2)
Quarter: 2021Q4

REPORT INFORMATION
  Report Type: Spontaneous
  Country: US (occurrence: US)
  Receive Date: 20210811
  Receipt Date: 20211006
  Transmission Date: 20220303
  Serious: No
  Sender: FDA-Public Use
  Company Number: US-PFIZER INC-202100999067

PATIENT
  Age: 65 Year
  Sex: Female

DRUGS (1)
  1. IBRANCE [Suspect]
     Active Substance: PALBOCICLIB
     Dosage: 100 MG

REACTIONS (10)
  - Neoplasm progression [Unknown]
  - White blood cell count decreased [Unknown]
  - Photosensitivity reaction [Unknown]
  - Pruritus [Unknown]
  - Rash [Unknown]
  - Abdominal discomfort [Unknown]
  - Stomatitis [Unknown]
  - Malaise [Unknown]
  - Eye disorder [Unknown]
  - Depressed mood [Unknown]
